FAERS Safety Report 7386447-2 (Version None)
Quarter: 2011Q1

REPORT INFORMATION
  Report Type: 
  Country: None (occurrence: None)
  Receive Date: 20110331
  Receipt Date: 20110317
  Transmission Date: 20110831
  Serious: No
  Sender: FDA-Public Use
  Company Number: US-JNJFOC-20110308150

PATIENT
  Sex: Male
  Weight: 81.65 kg

DRUGS (2)
  1. DURAGESIC-50 [Suspect]
     Indication: BACK PAIN
     Route: 062
  2. UNKNOWN MEDICATION [Concomitant]
     Indication: PRE-EXISTING DISEASE
     Route: 065

REACTIONS (1)
  - WRONG TECHNIQUE IN DRUG USAGE PROCESS [None]
